FAERS Safety Report 14889010 (Version 1)
Quarter: 2018Q2

REPORT INFORMATION
  Report Type: Spontaneous
  Country: CN (occurrence: CN)
  Receive Date: 20180514
  Receipt Date: 20180514
  Transmission Date: 20180711
  Serious: Yes (Death, Other)
  Sender: FDA-Public Use
  Company Number: CN-DENTSPLY-2018SCDP000093

PATIENT
  Age: 20 Year
  Sex: Male

DRUGS (3)
  1. ADRENALINE                         /00003901/ [Concomitant]
     Active Substance: EPINEPHRINE
     Indication: LOCAL ANAESTHESIA
     Dosage: 1:50,000
  2. XYLOCAINE [Suspect]
     Active Substance: LIDOCAINE HYDROCHLORIDE
     Indication: DENTAL OPERATION
     Dosage: 16 MG, UNK
  3. XYLOCAINE [Suspect]
     Active Substance: LIDOCAINE HYDROCHLORIDE
     Indication: LOCAL ANAESTHESIA

REACTIONS (4)
  - Cardio-respiratory arrest [Fatal]
  - Seizure [Unknown]
  - Loss of consciousness [Unknown]
  - Anaphylactic reaction [Fatal]
